FAERS Safety Report 13667650 (Version 1)
Quarter: 2017Q2

REPORT INFORMATION
  Report Type: Spontaneous
  Country: US (occurrence: US)
  Receive Date: 20170619
  Receipt Date: 20170619
  Transmission Date: 20170830
  Serious: No
  Sender: FDA-Public Use
  Company Number: None

PATIENT
  Age: 40 Year
  Sex: Female
  Weight: 64.92 kg

DRUGS (1)
  1. BUPRENORPHINE/NALOXONE 8 MG [Suspect]
     Active Substance: BUPRENORPHINE\NALOXONE
     Route: 060
     Dates: start: 20170617, end: 20170619

REACTIONS (4)
  - Dizziness [None]
  - Peripheral swelling [None]
  - Headache [None]
  - Swelling [None]

NARRATIVE: CASE EVENT DATE: 20170618
